FAERS Safety Report 9447622 (Version 1)
Quarter: 2013Q3

REPORT INFORMATION
  Report Type: Spontaneous
  Country: DE (occurrence: None)
  Receive Date: 20130805
  Receipt Date: 20130805
  Transmission Date: 20140515
  Serious: Yes (Other)
  Sender: FDA-Public Use
  Company Number: SYM-2013-06949

PATIENT
  Age: 31 Year
  Sex: Female

DRUGS (1)
  1. ELONTRIL [Suspect]
     Indication: PRODUCT USED FOR UNKNOWN INDICATION
     Dates: start: 201301, end: 201303

REACTIONS (4)
  - Suicidal ideation [None]
  - General physical health deterioration [None]
  - Self-injurious ideation [None]
  - Thinking abnormal [None]
